FAERS Safety Report 5134958-2 (Version None)
Quarter: 2006Q4

REPORT INFORMATION
  Report Type: 
  Country: None (occurrence: None)
  Receive Date: 20061019
  Receipt Date: 20061010
  Transmission Date: 20070319
  Serious: Yes (Hospitalization)
  Sender: FDA-Public Use
  Company Number: 2006BI013368

PATIENT
  Age: 51 Year
  Sex: Female

DRUGS (6)
  1. AVONEX [Suspect]
     Indication: MULTIPLE SCLEROSIS
     Dosage: 30 UG; QW', IM
     Route: 030
     Dates: start: 20020701, end: 20030801
  2. AVONEX [Suspect]
     Indication: MULTIPLE SCLEROSIS
     Dosage: 30 UG, QW; IM
     Route: 030
     Dates: start: 20030901
  3. CENTRUM [Concomitant]
  4. CALCIUM [Concomitant]
  5. VIT C [Concomitant]
  6. VIT E [Concomitant]

REACTIONS (2)
  - ABDOMINAL MASS [None]
  - OVARIAN CYST [None]
